FAERS Safety Report 17454421 (Version 2)
Quarter: 2020Q1

REPORT INFORMATION
  Report Type: Spontaneous
  Country: US (occurrence: US)
  Receive Date: 20200225
  Receipt Date: 20200226
  Transmission Date: 20200409
  Serious: Yes (Other)
  Sender: FDA-Public Use
  Company Number: US-CIPLA LTD.-2020US01285

PATIENT

DRUGS (5)
  1. OXALIPLATIN. [Suspect]
     Active Substance: OXALIPLATIN
     Indication: ADENOCARCINOMA OF COLON
     Dosage: 85 MG/M^2, EVERY 2 WEEKS, 10 CYCLES
     Route: 065
  2. OXALIPLATIN. [Suspect]
     Active Substance: OXALIPLATIN
     Dosage: 30% REDUCTION IN THE DOSE
     Route: 065
  3. FOLINIC ACID [Concomitant]
     Active Substance: LEUCOVORIN
     Indication: ADENOCARCINOMA OF COLON
     Dosage: UNK, 10 CYCLES
     Route: 065
  4. FLUOROURACIL 5 FU [Concomitant]
     Active Substance: FLUOROURACIL
     Indication: ADENOCARCINOMA OF COLON
     Dosage: UNK, 10 CYCLES
     Route: 065
  5. BEVACIZUMAB. [Concomitant]
     Active Substance: BEVACIZUMAB
     Indication: ADENOCARCINOMA OF COLON
     Dosage: UNK, 10 CYCLES
     Route: 065

REACTIONS (2)
  - Neuropathy peripheral [Unknown]
  - Neurotoxicity [Unknown]
